FAERS Safety Report 19918022 (Version 1)
Quarter: 2021Q4

REPORT INFORMATION
  Report Type: Spontaneous
  Country: US (occurrence: US)
  Receive Date: 20211005
  Receipt Date: 20211005
  Transmission Date: 20220303
  Serious: Yes (Hospitalization)
  Sender: FDA-Public Use
  Company Number: US-ROCHE-2925720

PATIENT
  Sex: Female

DRUGS (1)
  1. ALECENSA [Suspect]
     Active Substance: ALECTINIB HYDROCHLORIDE
     Indication: Malignant neoplasm of unknown primary site
     Dosage: TWICE DAILY
     Route: 048
     Dates: start: 20210430, end: 20210629

REACTIONS (2)
  - Failure to thrive [Unknown]
  - Dyspnoea [Unknown]
